FAERS Safety Report 4861323-5 (Version None)
Quarter: 2005Q4

REPORT INFORMATION
  Report Type: 
  Country: None (occurrence: None)
  Receive Date: 20051216
  Receipt Date: 20051205
  Transmission Date: 20060501
  Serious: Yes (Other)
  Sender: FDA-Public Use
  Company Number: 2005165389

PATIENT
  Sex: Female
  Weight: 68.0396 kg

DRUGS (9)
  1. LIPITOR [Suspect]
     Indication: BLOOD CHOLESTEROL INCREASED
     Dosage: UNK (1 IN 1 D), UNKNOWN
     Route: 065
  2. METFORMIN HCL [Suspect]
     Indication: DIABETES MELLITUS
     Dosage: UNK (2 IN 1 D), UNKNOWN
     Route: 065
  3. NEURONTIN [Suspect]
     Indication: NEUROPATHY
     Dosage: UNKNOWN
     Route: 065
     Dates: start: 20000101
  4. LYRICA [Suspect]
     Indication: MUSCLE SPASMS
     Dosage: 150 MG (50 MG, 3 IN 1 D), UNKNOWN
     Route: 065
     Dates: start: 20051204
  5. AVANDIA [Suspect]
     Dosage: UNK (4 MG, UNKNOWN), UNKNOWN
     Route: 065
  6. ASPIRIN [Concomitant]
  7. PROZAC [Concomitant]
  8. AVAPRO [Concomitant]
  9. RIBELFAN (AMINOPHENAZONE, NOSCAPINE, QUININE, SULFAMETHOXYPYRIDAZINE) [Concomitant]

REACTIONS (10)
  - BALANCE DISORDER [None]
  - BLOOD CHOLESTEROL INCREASED [None]
  - BURNING SENSATION [None]
  - CONFUSIONAL STATE [None]
  - FATIGUE [None]
  - FOOT FRACTURE [None]
  - MUSCLE SPASMS [None]
  - MUSCULAR WEAKNESS [None]
  - NEUROPATHY [None]
  - OVERDOSE [None]
